FAERS Safety Report 5445452-3 (Version None)
Quarter: 2007Q3

REPORT INFORMATION
  Report Type: 
  Country: None (occurrence: None)
  Receive Date: 20070731
  Receipt Date: 20070618
  Transmission Date: 20080115
  Serious: No
  Sender: FDA-Public Use
  Company Number: US200706004251

PATIENT
  Age: 71 Year
  Sex: Male

DRUGS (7)
  1. BYETTA [Suspect]
     Dosage: SEE IMAGE
     Route: 058
     Dates: start: 20060201, end: 20060301
  2. BYETTA [Suspect]
     Dosage: SEE IMAGE
     Route: 058
     Dates: start: 20070301, end: 20070101
  3. BYETTA [Suspect]
     Dosage: SEE IMAGE
     Route: 058
     Dates: start: 20070101
  4. EXENATIDE PEN, DISPOSABLE DEVICE (EXENATIDE PEN [Concomitant]
  5. GLYBURIDE [Concomitant]
  6. ACTOS (PIOGLITAZONE UNKNOWN FORMULATION) [Concomitant]
  7. COUMADIN [Concomitant]

REACTIONS (6)
  - ABDOMINAL PAIN UPPER [None]
  - CONSTIPATION [None]
  - DECREASED APPETITE [None]
  - PALPITATIONS [None]
  - PAROSMIA [None]
  - WEIGHT DECREASED [None]
